FAERS Safety Report 8197085-6 (Version None)
Quarter: 2012Q1

REPORT INFORMATION
  Report Type: 
  Country: None (occurrence: None)
  Receive Date: 20120307
  Receipt Date: 20120228
  Transmission Date: 20120608
  Serious: Yes (Other)
  Sender: FDA-Public Use
  Company Number: AUR-APL-2012-00660

PATIENT
  Age: 68 Year
  Sex: Female
  Weight: 58.9676 kg

DRUGS (7)
  1. SYNTHROID [Concomitant]
  2. GABAPENTIN [Suspect]
     Indication: NEURALGIA
     Dosage: (3 DOSAGE FORMS,1 D),ORAL
     Route: 048
     Dates: start: 20120112, end: 20120121
  3. PRIMADOPHILUS (LACTOBACILLUS BIFIDUS) [Concomitant]
  4. VITAMIN D [Concomitant]
  5. MULTIVITAMIN (MULTIVITAMIN /00831701/) [Concomitant]
  6. XANAX [Concomitant]
  7. WELLBUTRIN [Concomitant]

REACTIONS (3)
  - CHANGE OF BOWEL HABIT [None]
  - GASTROINTESTINAL MOTILITY DISORDER [None]
  - INTESTINAL OBSTRUCTION [None]
